FAERS Safety Report 9413203 (Version 1)
Quarter: 2013Q3

REPORT INFORMATION
  Report Type: Report from Study
  Country: DE (occurrence: DE)
  Receive Date: 20130722
  Receipt Date: 20130722
  Transmission Date: 20140515
  Serious: Yes (Hospitalization)
  Sender: FDA-Public Use
  Company Number: DE-ABBOTT-12P-062-0951418-00

PATIENT
  Age: 47 Year
  Sex: Female

DRUGS (5)
  1. HUMIRA [Suspect]
     Indication: PSORIATIC ARTHROPATHY
     Route: 058
     Dates: start: 20120531
  2. IBUPROFEN RETARD [Concomitant]
     Indication: PRODUCT USED FOR UNKNOWN INDICATION
  3. DRUG FOR STOMACH PROTECTION [Concomitant]
     Indication: GASTRIC DISORDER
  4. DRUG FOR STOMACH PROTECTION [Concomitant]
     Indication: PROPHYLAXIS
  5. ASA 500 [Concomitant]
     Indication: PRODUCT USED FOR UNKNOWN INDICATION

REACTIONS (8)
  - Vasculitis cerebral [Not Recovered/Not Resolved]
  - Fatigue [Not Recovered/Not Resolved]
  - Increased appetite [Not Recovered/Not Resolved]
  - Nonspecific reaction [Not Recovered/Not Resolved]
  - Illusion [Not Recovered/Not Resolved]
  - Disturbance in attention [Not Recovered/Not Resolved]
  - Headache [Unknown]
  - Computerised tomogram head abnormal [Not Recovered/Not Resolved]
